FAERS Safety Report 19230423 (Version 1)
Quarter: 2021Q2

REPORT INFORMATION
  Report Type: Spontaneous
  Country: US (occurrence: US)
  Receive Date: 20210506
  Receipt Date: 20210506
  Transmission Date: 20210717
  Serious: Yes (Death)
  Sender: FDA-Public Use
  Company Number: None

PATIENT
  Sex: Male

DRUGS (1)
  1. ZIEXTENZO [Suspect]
     Active Substance: PEGFILGRASTIM-BMEZ
     Indication: PERIPHERAL T-CELL LYMPHOMA UNSPECIFIED
     Dosage: ?          OTHER FREQUENCY:QD X 21 DAT;?
     Dates: start: 20210108

REACTIONS (1)
  - Death [None]
